FAERS Safety Report 7533446-3 (Version None)
Quarter: 2011Q2

REPORT INFORMATION
  Report Type: 
  Country: None (occurrence: None)
  Receive Date: 20110608
  Receipt Date: 20090216
  Transmission Date: 20111010
  Serious: Yes (Other)
  Sender: FDA-Public Use
  Company Number: US-BAYER-200913038NA

PATIENT
  Age: 78 Year
  Sex: Male
  Weight: 95.238 kg

DRUGS (37)
  1. PHOSLO [Concomitant]
     Dosage: 667 MG, UNK
     Route: 048
     Dates: end: 20050101
  2. ACETAMINOPHEN [Concomitant]
     Dosage: 325 MG, PRN
     Route: 048
  3. ALPRAZOLAM [Concomitant]
     Dosage: UNK UNK, PRN
     Route: 048
  4. PAPAVERINE [Concomitant]
     Dosage: UNK
     Dates: start: 20050427
  5. CALCIUM CHLORIDE [Concomitant]
     Dosage: 1 G, UNK
     Dates: start: 20050427
  6. RED BLOOD CELLS [Concomitant]
     Dosage: 2 U, UNK
     Route: 042
     Dates: start: 20050427, end: 20050427
  7. ZOCOR [Concomitant]
     Dosage: 10 MG, (LONG TERM)
     Route: 048
  8. ACETYLSALICYLIC ACID SRT [Concomitant]
     Dosage: (LONG TERM)
     Route: 048
  9. GLUCOSAMINE [Concomitant]
     Dosage: (LONG TERM)
     Route: 048
  10. COLACE [Concomitant]
     Dosage: 100 MG, UNK
     Route: 048
     Dates: end: 20050101
  11. PROTONIX [Concomitant]
     Dosage: 40 MG, UNK
     Route: 048
     Dates: end: 20050101
  12. NITROGLYCERIN [Concomitant]
     Dosage: UNK
     Dates: start: 20050427
  13. PAVULON [Concomitant]
     Dosage: UNK
     Dates: start: 20050427
  14. HEPARIN [Concomitant]
     Dosage: 50 ML, UNK
     Route: 042
     Dates: start: 20050427
  15. INSULIN [Concomitant]
     Dosage: 20 U, UNK
     Dates: start: 20050427
  16. HESPAN IN EXCEL PLASTIC CONTAINER [Concomitant]
     Dosage: UNK
     Dates: start: 20050427
  17. SODIUM BICARBONATE [Concomitant]
     Dosage: 650 MG, UNK
     Route: 048
     Dates: end: 20050101
  18. PRECEDEX [Concomitant]
     Dosage: UNK
     Dates: start: 20050427
  19. LIDOCAINE [Concomitant]
     Dosage: 100 MG, UNK
     Dates: start: 20050427
  20. TRASYLOL [Suspect]
     Indication: AORTIC VALVE REPLACEMENT
     Dosage: 600 ML, (TOTAL DOSE RECEIVED)
     Route: 042
     Dates: start: 20050427, end: 20050427
  21. LIPITOR [Concomitant]
     Dosage: 20 MG, (LONG TERM)
     Route: 048
  22. PROPRANOLOL [Concomitant]
     Dosage: 20 MG (LONG TERM)
     Route: 048
  23. ANCEF [Concomitant]
     Dosage: 2 G, UNK
     Route: 042
     Dates: start: 20050427
  24. MORPHINE [Concomitant]
     Dosage: 5 MG, UNK
     Dates: start: 20050427
  25. TRASYLOL [Suspect]
     Indication: CORONARY ARTERY BYPASS
     Dosage: INFUSION (UNK RATE)
     Route: 042
     Dates: start: 20050427, end: 20050427
  26. COENZYME Q10 [Concomitant]
     Dosage: (LONG TERM)
     Route: 048
  27. SODIUM BICARBONATE [Concomitant]
     Dosage: 50 MEQ, UNK
     Dates: start: 20050427
  28. NEPHROCAPS [Concomitant]
     Dosage: UNK
     Route: 048
     Dates: end: 20050101
  29. COUMADIN [Concomitant]
     Dosage: 2 MG, UNK
     Route: 048
     Dates: end: 20050101
  30. NIPRIDE [Concomitant]
     Dosage: UNK
     Dates: start: 20050427
  31. DIPRIVAN [Concomitant]
     Dosage: UNK
     Dates: start: 20050427
  32. PROTAMINE SULFATE [Concomitant]
     Dosage: 1000 MG, UNK
     Route: 042
     Dates: start: 20050427
  33. SEVOFLURANE [Concomitant]
     Dosage: UNK
     Dates: start: 20050427, end: 20050427
  34. DILTIAZEM CD [Concomitant]
     Dosage: 180 MG, UNK
     Route: 048
     Dates: end: 20050101
  35. VERSED [Concomitant]
     Dosage: 5 MG, UNK
     Route: 030
     Dates: start: 20050427
  36. MANNITOL [Concomitant]
     Dosage: UNK
     Dates: start: 20050427
  37. PLASMALYTE [GLUCOSE,POTASSIUM CHLORIDE] [Concomitant]
     Dosage: UNK
     Dates: start: 20050427

REACTIONS (8)
  - RENAL FAILURE [None]
  - ANHEDONIA [None]
  - ANXIETY [None]
  - UNEVALUABLE EVENT [None]
  - DEPRESSION [None]
  - INJURY [None]
  - PAIN [None]
  - FEAR [None]
